FAERS Safety Report 12939531 (Version 1)
Quarter: 2016Q4

REPORT INFORMATION
  Report Type: Spontaneous
  Country: US (occurrence: US)
  Receive Date: 20161114
  Receipt Date: 20161114
  Transmission Date: 20170207
  Serious: Yes (Disabling)
  Sender: FDA-Public Use
  Company Number: None

PATIENT
  Age: 43 Year
  Sex: Female
  Weight: 45 kg

DRUGS (11)
  1. FLONASE [Concomitant]
     Active Substance: FLUTICASONE PROPIONATE
  2. B12 INJECTIONS [Concomitant]
  3. MEDTRONIC INTRATHECAL BACLOFEN PUMP [Concomitant]
  4. VALIUM [Concomitant]
     Active Substance: DIAZEPAM
  5. ZYRTEC [Concomitant]
     Active Substance: CETIRIZINE HYDROCHLORIDE
  6. VITAMIN D [Concomitant]
     Active Substance: CHOLECALCIFEROL
  7. OXYBUTYNIN [Concomitant]
     Active Substance: OXYBUTYNIN
  8. ARANELLE [Concomitant]
     Active Substance: ETHINYL ESTRADIOL\NORETHINDRONE
  9. PROBIOTICS [Concomitant]
     Active Substance: PROBIOTICS NOS
  10. CIPROFLOXACIN TABS 500MG [Suspect]
     Active Substance: CIPROFLOXACIN
     Indication: URINARY TRACT INFECTION
     Dosage: ?          QUANTITY:20 TABLET(S);?
     Route: 048
  11. ELLURA [Concomitant]
     Active Substance: DIETARY SUPPLEMENT

REACTIONS (2)
  - Tinnitus [None]
  - Migraine [None]

NARRATIVE: CASE EVENT DATE: 20161005
